FAERS Safety Report 8178788-6 (Version None)
Quarter: 2012Q1

REPORT INFORMATION
  Report Type: 
  Country: None (occurrence: None)
  Receive Date: 20120301
  Receipt Date: 20120221
  Transmission Date: 20120608
  Serious: Yes (Hospitalization, Other)
  Sender: FDA-Public Use
  Company Number: US-ASTRAZENECA-2012SE11791

PATIENT
  Age: 68 Year
  Sex: Female
  Weight: 71.2 kg

DRUGS (5)
  1. XALATAN [Suspect]
     Indication: GLAUCOMA
     Route: 047
     Dates: start: 20000101
  2. PRILOSEC [Suspect]
     Indication: GASTROOESOPHAGEAL REFLUX DISEASE
     Route: 048
  3. ATENOLOL [Concomitant]
     Indication: HYPERTENSION
     Route: 048
  4. TRIAMTERENE/HYDROCHLORTHIAZIDE [Concomitant]
     Indication: FLUID RETENTION
     Dosage: 37.5 MG/25 MG DAILY, SPLITTING INTO HALF
     Route: 048
  5. XALATAN [Suspect]
     Route: 047
     Dates: start: 20120101

REACTIONS (2)
  - NEOPLASM MALIGNANT [None]
  - GASTROOESOPHAGEAL REFLUX DISEASE [None]
